FAERS Safety Report 6500126-2 (Version None)
Quarter: 2009Q4

REPORT INFORMATION
  Report Type: 
  Country: None (occurrence: None)
  Receive Date: 20091216
  Receipt Date: 20091207
  Transmission Date: 20100525
  Serious: Yes (Hospitalization)
  Sender: FDA-Public Use
  Company Number: DE-SANOFI-AVENTIS-2009SA007051

PATIENT
  Age: 75 Year
  Sex: Female
  Weight: 77 kg

DRUGS (11)
  1. ARAVA [Suspect]
     Route: 048
     Dates: start: 20090801, end: 20091101
  2. LANTAREL [Suspect]
     Route: 048
     Dates: start: 20090101, end: 20091101
  3. METHYLPREDNISOLONE [Concomitant]
     Indication: DRUG USE FOR UNKNOWN INDICATION
  4. CALCIMAGON [Concomitant]
     Indication: DRUG USE FOR UNKNOWN INDICATION
  5. METFORMIN [Concomitant]
     Indication: DRUG USE FOR UNKNOWN INDICATION
  6. OMEPRAZOLE [Concomitant]
     Indication: DRUG USE FOR UNKNOWN INDICATION
  7. XIPAMIDE [Concomitant]
     Indication: DRUG USE FOR UNKNOWN INDICATION
  8. RAMIPRIL [Concomitant]
     Indication: DRUG USE FOR UNKNOWN INDICATION
  9. L-THYROXIN [Concomitant]
     Indication: DRUG USE FOR UNKNOWN INDICATION
  10. BISOPROLOL [Concomitant]
     Indication: DRUG USE FOR UNKNOWN INDICATION
  11. ACETYLSALICYLIC ACID [Concomitant]
     Indication: DRUG USE FOR UNKNOWN INDICATION

REACTIONS (7)
  - ANAEMIA [None]
  - ASTHENIA [None]
  - DECREASED APPETITE [None]
  - DYSPNOEA EXERTIONAL [None]
  - HEADACHE [None]
  - IMPAIRED HEALING [None]
  - STOMATITIS [None]
